FAERS Safety Report 6940511-8 (Version None)
Quarter: 2010Q3

REPORT INFORMATION
  Report Type: 
  Country: None (occurrence: None)
  Receive Date: 20100820
  Receipt Date: 20100812
  Transmission Date: 20110219
  Serious: Yes (Hospitalization, Other)
  Sender: FDA-Public Use
  Company Number: DKLU1063179

PATIENT
  Age: 2 Year
  Sex: Female

DRUGS (9)
  1. SABRIL [Suspect]
     Indication: INFANTILE SPASMS
     Dosage: 250 MG, 2 IN 1 D, ORAL; 500 MG, 2 IN 1 D, ORAL; 500 MG, EVERY MORN, ORAL; 1000 MG, EVERY NIGHT, ORAL
     Route: 048
     Dates: start: 20090401
  2. CLONAPIN (CLONAZEPAM) [Concomitant]
  3. MULTIVITAMIN (VIGRAN) [Concomitant]
  4. LOVENOX [Concomitant]
  5. CALCIUM CARBONATE [Concomitant]
  6. GABITRIL [Concomitant]
  7. SYNTHROID [Concomitant]
  8. ERGOCALCIFEROL (ERFOCALCIFEROL) [Concomitant]
  9. DIAMOX [Concomitant]

REACTIONS (9)
  - BLOOD THYROID STIMULATING HORMONE DECREASED [None]
  - BODY TEMPERATURE INCREASED [None]
  - BRADYCARDIA [None]
  - CONVULSION [None]
  - HEART RATE IRREGULAR [None]
  - HYPOTHERMIA [None]
  - NERVOUS SYSTEM DISORDER [None]
  - PALLOR [None]
  - URINARY TRACT INFECTION [None]
